FAERS Safety Report 17280900 (Version 1)
Quarter: 2020Q1

REPORT INFORMATION
  Report Type: Spontaneous
  Country: US (occurrence: US)
  Receive Date: 20200117
  Receipt Date: 20200117
  Transmission Date: 20200409
  Serious: No
  Sender: FDA-Public Use
  Company Number: US-TEVA-2020-US-1167870

PATIENT
  Sex: Male

DRUGS (2)
  1. HYDROCORTISONE. [Concomitant]
     Active Substance: HYDROCORTISONE
  2. BUPRENORPHINE. [Suspect]
     Active Substance: BUPRENORPHINE
     Indication: BACK DISORDER
     Dosage: 20 MICROGRAM/HR
     Route: 065
     Dates: start: 201912

REACTIONS (5)
  - Skin reaction [Unknown]
  - Skin abrasion [Unknown]
  - Urticaria [Unknown]
  - Skin haemorrhage [Unknown]
  - Product quality issue [Unknown]
